FAERS Safety Report 15077121 (Version 1)
Quarter: 2018Q2

REPORT INFORMATION
  Report Type: Spontaneous
  Country: ZA (occurrence: ZA)
  Receive Date: 20180627
  Receipt Date: 20180627
  Transmission Date: 20180711
  Serious: Yes (Hospitalization)
  Sender: FDA-Public Use
  Company Number: ZA-NOVOPROD-606780

PATIENT
  Age: 58 Year
  Sex: Female

DRUGS (4)
  1. ESTROFEM [Suspect]
     Active Substance: ESTRADIOL CYPIONATE
     Indication: HORMONE REPLACEMENT THERAPY
     Dosage: 1 MG
     Route: 048
  2. LANCAP [Concomitant]
     Active Substance: LANSOPRAZOLE
     Dosage: 30MG
  3. GLUCOPHAGE [Concomitant]
     Active Substance: METFORMIN HYDROCHLORIDE
     Dosage: 500MG
  4. ASPAVOR [Concomitant]
     Active Substance: ATORVASTATIN
     Dosage: 40MG

REACTIONS (1)
  - Spinal operation [Unknown]

NARRATIVE: CASE EVENT DATE: 20180604
